FAERS Safety Report 10171152 (Version 1)
Quarter: 2014Q2

REPORT INFORMATION
  Report Type: Spontaneous
  Country: US (occurrence: None)
  Receive Date: 20140513
  Receipt Date: 20140513
  Transmission Date: 20141212
  Serious: Yes (Other)
  Sender: FDA-Public Use
  Company Number: None

PATIENT
  Age: 50 Year
  Sex: Male
  Weight: 132 kg

DRUGS (1)
  1. TAMSULOSIN 0.4MG [Suspect]
     Indication: URINARY TRACT DISORDER
     Dosage: ONE DAILY?
     Dates: start: 20140501

REACTIONS (2)
  - Headache [None]
  - Back pain [None]
